FAERS Safety Report 5648390-6 (Version None)
Quarter: 2008Q1

REPORT INFORMATION
  Report Type: 
  Country: None (occurrence: None)
  Receive Date: 20080304
  Receipt Date: 20080221
  Transmission Date: 20080703
  Serious: Yes (Hospitalization)
  Sender: FDA-Public Use
  Company Number: US-AMGEN-US266411

PATIENT
  Sex: Female
  Weight: 68.1 kg

DRUGS (7)
  1. ENBREL [Suspect]
     Indication: RHEUMATOID ARTHRITIS
     Route: 030
     Dates: start: 20011021
  2. PRILOSEC [Concomitant]
     Route: 065
  3. PROCARDIA [Concomitant]
     Route: 065
  4. ASPIRIN [Concomitant]
     Route: 065
  5. IMURAN [Concomitant]
     Route: 065
     Dates: start: 20020531
  6. PREDNISONE TAB [Concomitant]
     Route: 065
  7. METOPROLOL TARTRATE [Concomitant]
     Route: 065

REACTIONS (1)
  - RENAL ARTERY STENOSIS [None]
